FAERS Safety Report 16210477 (Version 2)
Quarter: 2019Q2

REPORT INFORMATION
  Report Type: Report from Study
  Country: DE (occurrence: DE)
  Receive Date: 20190418
  Receipt Date: 20190419
  Transmission Date: 20190711
  Serious: Yes (Life-Threatening, Hospitalization, Other)
  Sender: FDA-Public Use
  Company Number: PHHY2019DE085512

PATIENT
  Sex: Female
  Weight: 58 kg

DRUGS (4)
  1. KISQALI [Suspect]
     Active Substance: RIBOCICLIB
     Indication: BREAST CANCER METASTATIC
     Dosage: 1X 600 MG QD (MORNING) FOR 21 DAYS
     Route: 048
     Dates: start: 20190123
  2. XARELTO [Suspect]
     Active Substance: RIVAROXABAN
     Indication: DEEP VEIN THROMBOSIS
     Route: 048
  3. XARELTO [Suspect]
     Active Substance: RIVAROXABAN
     Indication: PULMONARY EMBOLISM
  4. LETROZOLE. [Suspect]
     Active Substance: LETROZOLE
     Indication: BREAST CANCER METASTATIC
     Dosage: 1X 2.5 MG QD ONCE DAILY (MORNING) FOR 28 DAYS
     Route: 048
     Dates: start: 20190123

REACTIONS (3)
  - Pneumonia aspiration [Not Recovered/Not Resolved]
  - Abdominal hernia [Unknown]
  - Haematemesis [Not Recovered/Not Resolved]

NARRATIVE: CASE EVENT DATE: 20190407
